FAERS Safety Report 16135545 (Version 3)
Quarter: 2019Q2

REPORT INFORMATION
  Report Type: Spontaneous
  Country: DE (occurrence: DE)
  Receive Date: 20190329
  Receipt Date: 20190614
  Transmission Date: 20190711
  Serious: Yes (Hospitalization, Other)
  Sender: FDA-Public Use
  Company Number: DE-GILEAD-2019-0398393

PATIENT
  Age: 60 Year
  Sex: Male
  Weight: 82 kg

DRUGS (16)
  1. YESCARTA [Suspect]
     Active Substance: AXICABTAGENE CILOLEUCEL
     Indication: DIFFUSE LARGE B-CELL LYMPHOMA REFRACTORY
     Dosage: UNK UNK, ONCE
     Route: 042
     Dates: start: 20190314, end: 20190314
  2. TAZOBAC [Suspect]
     Active Substance: PIPERACILLIN SODIUM\TAZOBACTAM SODIUM
     Indication: KLEBSIELLA SEPSIS
     Dosage: UNK
     Route: 065
     Dates: start: 20190317, end: 20190325
  3. COTRIM FORTE [Concomitant]
     Active Substance: SULFAMETHOXAZOLE\TRIMETHOPRIM
  4. FLUDARABINE [Suspect]
     Active Substance: FLUDARABINE PHOSPHATE
     Indication: BONE MARROW CONDITIONING REGIMEN
     Dosage: 62.1 MG, QD
     Route: 042
     Dates: start: 20190308, end: 20190310
  5. PREGABALIN. [Concomitant]
     Active Substance: PREGABALIN
  6. VALGANCICLOVIR. [Concomitant]
     Active Substance: VALGANCICLOVIR
  7. L-THYROXINE [LEVOTHYROXINE] [Concomitant]
     Active Substance: LEVOTHYROXINE
  8. ACICLOVIR [Concomitant]
     Active Substance: ACYCLOVIR
  9. SITAGLIPTIN [Concomitant]
     Active Substance: SITAGLIPTIN
  10. LINEZOLID. [Suspect]
     Active Substance: LINEZOLID
     Indication: PRODUCT USED FOR UNKNOWN INDICATION
     Route: 065
  11. PANTOPRAZOL [PANTOPRAZOLE] [Concomitant]
     Active Substance: PANTOPRAZOLE
  12. DEKRISTOL [Concomitant]
     Active Substance: CHOLECALCIFEROL
  13. CYCLOPHOSPHAMIDE. [Suspect]
     Active Substance: CYCLOPHOSPHAMIDE
     Indication: BONE MARROW CONDITIONING REGIMEN
     Dosage: 1035 MG, QD
     Route: 042
     Dates: start: 20190308, end: 20190310
  14. CALCIVIT [CALCIUM;COLECALCIFEROL] [Concomitant]
  15. REKAWAN [Concomitant]
     Active Substance: POTASSIUM CHLORIDE
  16. FLUCONAZOL [Concomitant]
     Active Substance: FLUCONAZOLE

REACTIONS (4)
  - Neutropenia [Not Recovered/Not Resolved]
  - Klebsiella sepsis [Recovered/Resolved]
  - Hyperbilirubinaemia [Recovered/Resolved]
  - Cytokine release syndrome [Recovered/Resolved]

NARRATIVE: CASE EVENT DATE: 20190317
